FAERS Safety Report 8599710-4 (Version None)
Quarter: 2012Q3

REPORT INFORMATION
  Report Type: 
  Country: None (occurrence: None)
  Receive Date: 20120802
  Receipt Date: 20120719
  Transmission Date: 20120928
  Serious: Yes (Disabling)
  Sender: FDA-Public Use
  Company Number: CL-436-2012

PATIENT
  Age: 69 Year
  Sex: Male

DRUGS (7)
  1. SIMVASTATIN [Concomitant]
  2. RAMIPRIL [Concomitant]
  3. BETAHISTINE DIHYDROCHLORIDE [Concomitant]
  4. CLINDAMYCIN HCL [Suspect]
  5. AMOXICILLIN [Suspect]
     Indication: TOOTH INFECTION
     Dosage: 1 (UNIT UNK) TID UNK UNK
     Dates: start: 20120416
  6. POTASSIUM CLAVULANATE UNK [Suspect]
     Indication: TOOTH INFECTION
     Dosage: 1 (UNIT UNK) TID UNK UNK
     Dates: start: 20120416
  7. METRONIDAZOLE [Suspect]
     Indication: TOOTH INFECTION
     Dosage: 3/DAY (UNIT UNK) UNK UNK
     Dates: start: 20120416

REACTIONS (1)
  - HEPATITIS ACUTE [None]
